FAERS Safety Report 7619603-6 (Version None)
Quarter: 2011Q3

REPORT INFORMATION
  Report Type: 
  Country: None (occurrence: None)
  Receive Date: 20110719
  Receipt Date: 20081009
  Transmission Date: 20111222
  Serious: Yes (Hospitalization, Other)
  Sender: FDA-Public Use
  Company Number: US-BAYER-200835437NA

PATIENT
  Age: 70 Year
  Sex: Female
  Weight: 60.771 kg

DRUGS (21)
  1. TRASYLOL [Suspect]
     Indication: MITRAL VALVE REPLACEMENT
     Dosage: 200 ML LOADING DOSE
     Route: 042
     Dates: start: 20040901, end: 20040901
  2. MAVIK [Concomitant]
     Dosage: 4 MG/24HR, UNK
     Route: 048
  3. HEPARIN [Concomitant]
     Dosage: UNK
     Dates: start: 20040903
  4. RED BLOOD CELLS [Concomitant]
     Dosage: 654 ML, UNK
     Route: 042
     Dates: start: 20040901
  5. TRASYLOL [Suspect]
     Dosage: 50 ML/HR INFUSION
     Route: 042
     Dates: start: 20040903, end: 20040903
  6. CELEBREX [Concomitant]
     Dosage: 200 MG/24HR, UNK
     Route: 048
  7. TRASYLOL [Suspect]
     Dosage: 200 ML LOADING DOSE
     Route: 042
     Dates: start: 20040903, end: 20040903
  8. PLAVIX [Concomitant]
     Dosage: 75 MG/24HR, UNK
     Route: 042
  9. ETOMIDATE [Concomitant]
     Dosage: UNK
     Dates: start: 20040901
  10. TRASYLOL [Suspect]
     Indication: MITRAL VALVE REPAIR
     Dosage: 1 ML, ONCE, INITIAL TEST DOSE
     Route: 042
     Dates: start: 20040901, end: 20040901
  11. TOPROL-XL [Concomitant]
     Dosage: 100 MG/24HR, UNK
     Route: 048
  12. ACETYLSALICYLIC ACID SRT [Concomitant]
     Dosage: 81 MG/24HR, UNK
     Route: 048
  13. KETAMINE HCL [Concomitant]
     Route: 042
  14. FENTANYL-100 [Concomitant]
     Dosage: UNK
     Dates: start: 20040901
  15. CONTRAST MEDIA [Concomitant]
     Indication: CATHETERISATION CARDIAC
     Dosage: UNK
     Dates: start: 20040830
  16. TRASYLOL [Suspect]
     Indication: HIGH FREQUENCY ABLATION
     Dosage: 50 ML/HR INFUSION
     Route: 042
     Dates: start: 20040901, end: 20040901
  17. VANCOMYCIN [Concomitant]
     Dosage: UNK
     Route: 042
     Dates: start: 20040901
  18. PROPOFOL [Concomitant]
     Dosage: UNK
     Route: 042
     Dates: start: 20040901
  19. AMOXICILLIN [Concomitant]
     Dosage: 500 MG, UNK
     Route: 048
  20. VERSED [Concomitant]
     Dosage: 1 MG, UNK
     Route: 042
     Dates: start: 20040901
  21. ANCEF [Concomitant]
     Dosage: UNK
     Dates: start: 20040903

REACTIONS (11)
  - RENAL INJURY [None]
  - EMOTIONAL DISTRESS [None]
  - RENAL FAILURE [None]
  - UNEVALUABLE EVENT [None]
  - MULTI-ORGAN FAILURE [None]
  - FEAR [None]
  - PAIN [None]
  - RENAL IMPAIRMENT [None]
  - STRESS [None]
  - ANXIETY [None]
  - DEPRESSION [None]
